FAERS Safety Report 6273845-3 (Version None)
Quarter: 2009Q3

REPORT INFORMATION
  Report Type: 
  Country: None (occurrence: None)
  Receive Date: 20090720
  Receipt Date: 20090713
  Transmission Date: 20100115
  Serious: Yes (Other)
  Sender: FDA-Public Use
  Company Number: US-PFIZER INC-2009240075

PATIENT
  Sex: Female
  Weight: 70.295 kg

DRUGS (5)
  1. PROVERA [Suspect]
     Indication: MENOPAUSAL SYMPTOMS
     Dosage: 2.5 MG, UNK
     Dates: start: 19931001, end: 19950501
  2. MEDROXYPROGESTERONE AND MEDROXYPROGESTERONE ACETATE [Suspect]
     Indication: MENOPAUSAL SYMPTOMS
     Dosage: UNK
     Dates: start: 19950501, end: 19970101
  3. PREMARIN [Suspect]
     Indication: MENOPAUSAL SYMPTOMS
     Dosage: 0.625 MG, UNK
     Dates: start: 19931001, end: 19960701
  4. PREMPRO [Suspect]
     Indication: MENOPAUSAL SYMPTOMS
     Dosage: 2.5 MG, UNK
     Dates: start: 19970101, end: 20001001
  5. BUTALBITAL [Concomitant]
     Indication: MIGRAINE
     Dosage: UNK
     Dates: start: 19950101

REACTIONS (1)
  - BREAST CANCER [None]
